FAERS Safety Report 7056799-1 (Version None)
Quarter: 2010Q4

REPORT INFORMATION
  Report Type: 
  Country: None (occurrence: None)
  Receive Date: 20101022
  Receipt Date: 20101015
  Transmission Date: 20110411
  Serious: Yes (Hospitalization)
  Sender: FDA-Public Use
  Company Number: 140639

PATIENT
  Age: 37 Year
  Sex: Female
  Weight: 52 kg

DRUGS (9)
  1. AVONEX [Suspect]
     Indication: MULTIPLE SCLEROSIS
     Route: 030
     Dates: start: 19960901
  2. PROZAC [Concomitant]
     Indication: DEPRESSION
  3. BACLOFEN [Concomitant]
     Indication: MULTIPLE SCLEROSIS
  4. SYNTHROID [Concomitant]
     Indication: HYPOTHYROIDISM
  5. ULTRAM [Concomitant]
     Indication: PAIN
  6. NEURONTIN [Concomitant]
     Indication: NEURALGIA
  7. PRILOSEC [Concomitant]
     Indication: GASTROOESOPHAGEAL REFLUX DISEASE
  8. URISPAS [Concomitant]
     Indication: BLADDER DISORDER
  9. NORFLEX [Concomitant]
     Indication: MULTIPLE SCLEROSIS

REACTIONS (3)
  - MULTIPLE SCLEROSIS RELAPSE [None]
  - SUICIDE ATTEMPT [None]
  - WEIGHT DECREASED [None]
